FAERS Safety Report 12230915 (Version 1)
Quarter: 2016Q2

REPORT INFORMATION
  Report Type: Spontaneous
  Country: US (occurrence: US)
  Receive Date: 20160401
  Receipt Date: 20160401
  Transmission Date: 20160815
  Serious: Yes (Other)
  Sender: FDA-Public Use
  Company Number: US-ASTRAZENECA-2016SE34532

PATIENT
  Sex: Male

DRUGS (1)
  1. BRILINTA [Suspect]
     Active Substance: TICAGRELOR
     Route: 048

REACTIONS (1)
  - Myocardial infarction [Unknown]
